FAERS Safety Report 4311182-4 (Version None)
Quarter: 2004Q1

REPORT INFORMATION
  Report Type: 
  Country: None (occurrence: None)
  Receive Date: 20040302
  Receipt Date: 20040302
  Transmission Date: 20041129
  Serious: Yes (Hospitalization)
  Sender: FDA-Public Use
  Company Number: None

PATIENT
  Age: 62 Year
  Sex: Female
  Weight: 163.8 kg

DRUGS (2)
  1. HERCEPTIN [Suspect]
     Indication: BREAST CANCER METASTATIC
     Dosage: 148 MG WEEKLY INTRAVENOUS
     Route: 042
     Dates: start: 20000901, end: 20040301
  2. ZOMETA [Suspect]
     Indication: BREAST CANCER METASTATIC
     Dosage: 4 MG Q 3 WEEKS INTRAVENOUS
     Route: 042
     Dates: start: 20020401, end: 20040301

REACTIONS (1)
  - SPINAL CORD COMPRESSION [None]
